FAERS Safety Report 6484780-X (Version None)
Quarter: 2009Q4

REPORT INFORMATION
  Report Type: 
  Country: None (occurrence: None)
  Receive Date: 20091209
  Receipt Date: 20081017
  Transmission Date: 20100525
  Serious: Yes (Hospitalization)
  Sender: FDA-Public Use
  Company Number: A0753203A

PATIENT
  Age: 39 Year
  Sex: Female
  Weight: 82.3 kg

DRUGS (5)
  1. AVANDAMET [Suspect]
     Dosage: 2.5MG PER DAY
     Route: 048
     Dates: start: 20030101, end: 20070101
  2. AVANDARYL [Suspect]
     Dosage: 4MG PER DAY
     Route: 048
     Dates: start: 20070101, end: 20080101
  3. AVANDIA [Suspect]
     Route: 048
     Dates: start: 20070101, end: 20080101
  4. PRANDIN [Concomitant]
     Dates: start: 20030101, end: 20060101
  5. AMARYL [Concomitant]
     Dates: start: 20070101

REACTIONS (2)
  - CARDIAC DISORDER [None]
  - CARDIAC FAILURE CONGESTIVE [None]
